FAERS Safety Report 5011079-0 (Version None)
Quarter: 2006Q2

REPORT INFORMATION
  Report Type: 
  Country: None (occurrence: None)
  Receive Date: 20060523
  Receipt Date: 20060520
  Transmission Date: 20061013
  Serious: Yes (Other)
  Sender: FDA-Public Use
  Company Number: 223203

PATIENT
  Age: 58 Year
  Sex: Male
  Weight: 69 kg

DRUGS (4)
  1. AVASTIN [Suspect]
     Indication: COLON CANCER
     Dosage: 7.5 MG/KG Q3W INTRAVENOUS
     Route: 042
     Dates: start: 20060117
  2. CAPECITABINE (CAPECITABINE) [Suspect]
     Indication: COLON CANCER
     Dosage: 1000MG/M2 BID ORAL
     Route: 048
     Dates: start: 20060117, end: 20060303
  3. OXALIPLATIN (OXALIPLATIN) [Suspect]
     Indication: COLON CANCER
     Dosage: 130 MG/M2 INTRAVENOUS
     Route: 042
     Dates: start: 20060117
  4. OMEPRAZOLE [Concomitant]

REACTIONS (2)
  - BLOOD LACTATE DEHYDROGENASE INCREASED [None]
  - CHEST PAIN [None]
